FAERS Safety Report 5198077-1 (Version None)
Quarter: 2006Q4

REPORT INFORMATION
  Report Type: 
  Country: None (occurrence: None)
  Receive Date: 20061228
  Receipt Date: 20060829
  Transmission Date: 20070319
  Serious: Yes (Hospitalization)
  Sender: FDA-Public Use
  Company Number: SPI200600116

PATIENT
  Age: 82 Year
  Sex: Female
  Weight: 65.3 kg

DRUGS (4)
  1. AMITIZA [Suspect]
     Indication: CONSTIPATION
     Dosage: 24 MCG, BID, ORAL
     Route: 048
     Dates: start: 20060829, end: 20060829
  2. ATIVAN [Concomitant]
  3. ASPIRIN [Concomitant]
  4. MAXZIDE [Concomitant]

REACTIONS (2)
  - CORONARY ARTERY OCCLUSION [None]
  - COUGH [None]
